FAERS Safety Report 16071797 (Version 1)
Quarter: 2019Q1

REPORT INFORMATION
  Report Type: Spontaneous
  Country: US (occurrence: US)
  Receive Date: 20190314
  Receipt Date: 20190314
  Transmission Date: 20190418
  Serious: No
  Sender: FDA-Public Use
  Company Number: US-ASTRAZENECA-2019SE26367

PATIENT
  Age: 40 Year
  Sex: Female
  Weight: 99.8 kg

DRUGS (3)
  1. TOPAMAX [Concomitant]
     Active Substance: TOPIRAMATE
     Indication: MIGRAINE
     Route: 048
  2. BYDUREON [Suspect]
     Active Substance: EXENATIDE
     Indication: TYPE 2 DIABETES MELLITUS
     Route: 058
  3. TOPAMAX [Concomitant]
     Active Substance: TOPIRAMATE
     Indication: AFFECTIVE DISORDER
     Route: 048

REACTIONS (7)
  - Fatigue [Recovered/Resolved]
  - Glycosylated haemoglobin abnormal [Unknown]
  - Decreased appetite [Unknown]
  - Device issue [Unknown]
  - Blood glucose increased [Unknown]
  - Product dose omission [Recovered/Resolved]
  - Irritability [Recovered/Resolved]

NARRATIVE: CASE EVENT DATE: 2018
